FAERS Safety Report 10990331 (Version 2)
Quarter: 2015Q2

REPORT INFORMATION
  Report Type: Spontaneous
  Country: JP (occurrence: JP)
  Receive Date: 20150406
  Receipt Date: 20150528
  Transmission Date: 20150821
  Serious: Yes (Death)
  Sender: FDA-Public Use
  Company Number: JP-SA-2015SA041441

PATIENT
  Age: 78 Year
  Sex: Male

DRUGS (1)
  1. LASIX [Suspect]
     Active Substance: FUROSEMIDE
     Route: 048
     Dates: start: 201404, end: 201405

REACTIONS (2)
  - Acute respiratory distress syndrome [Fatal]
  - Stevens-Johnson syndrome [Fatal]
